FAERS Safety Report 6679358-9 (Version None)
Quarter: 2010Q2

REPORT INFORMATION
  Report Type: 
  Country: None (occurrence: None)
  Receive Date: 20100413
  Receipt Date: 20100331
  Transmission Date: 20101027
  Serious: Yes (Death)
  Sender: FDA-Public Use
  Company Number: US-GENZYME-CERZ-1000495

PATIENT
  Sex: Male

DRUGS (1)
  1. CEREZYME [Suspect]
     Indication: GAUCHER'S DISEASE
     Dosage: UNK
     Route: 042
     Dates: start: 19970601, end: 20061001

REACTIONS (8)
  - ATTENTION DEFICIT/HYPERACTIVITY DISORDER [None]
  - BONE PAIN [None]
  - FATIGUE [None]
  - GUN SHOT WOUND [None]
  - IMMUNE SYSTEM DISORDER [None]
  - NASOPHARYNGITIS [None]
  - STAPHYLOCOCCAL INFECTION [None]
  - SUBSTANCE ABUSE [None]
